FAERS Safety Report 5671433-0 (Version None)
Quarter: 2008Q1

REPORT INFORMATION
  Report Type: 
  Country: None (occurrence: None)
  Receive Date: 20080313
  Receipt Date: 20080305
  Transmission Date: 20080703
  Serious: Yes (Hospitalization)
  Sender: FDA-Public Use
  Company Number: 2008AL001473

PATIENT
  Age: 97 Year
  Sex: Female

DRUGS (6)
  1. SPIRONOLACTONE [Suspect]
     Indication: CARDIAC FAILURE
     Dosage: 25 MG; QD; PO
     Route: 048
     Dates: start: 20071203, end: 20071205
  2. DICLOFENAC SODIUM [Suspect]
     Indication: CARDIAC FAILURE
     Dosage: 50 MG, QD; PO
     Route: 048
     Dates: end: 20071202
  3. IMPUGAN [Concomitant]
  4. VOLTAREN [Concomitant]
  5. ATARAX [Concomitant]
  6. ACETAMINOPHEN [Concomitant]

REACTIONS (6)
  - ARTERITIS [None]
  - CARDIAC FAILURE [None]
  - CARDIAC MURMUR [None]
  - HAEMOGLOBIN DECREASED [None]
  - OEDEMA PERIPHERAL [None]
  - THROMBOCYTOPENIA [None]
